FAERS Safety Report 13461786 (Version 1)
Quarter: 2017Q2

REPORT INFORMATION
  Report Type: Spontaneous
  Country: US (occurrence: US)
  Receive Date: 20170418
  Receipt Date: 20170418
  Transmission Date: 20170830
  Serious: Yes (Hospitalization)
  Sender: FDA-Public Use
  Company Number: None

PATIENT
  Age: 63 Year
  Sex: Female

DRUGS (1)
  1. REVLIMID [Suspect]
     Active Substance: LENALIDOMIDE
     Indication: PLASMA CELL MYELOMA
     Route: 048
     Dates: start: 20170403

REACTIONS (4)
  - Chest pain [None]
  - Pulmonary embolism [None]
  - Acute coronary syndrome [None]
  - Acute kidney injury [None]

NARRATIVE: CASE EVENT DATE: 20170406
